FAERS Safety Report 7480747-3 (Version None)
Quarter: 2011Q2

REPORT INFORMATION
  Report Type: 
  Country: None (occurrence: None)
  Receive Date: 20110512
  Receipt Date: 20110512
  Transmission Date: 20111010
  Serious: No
  Sender: FDA-Public Use
  Company Number: None

PATIENT
  Age: 70 Year
  Sex: Female
  Weight: 58.9676 kg

DRUGS (1)
  1. AMLODIPINE [Suspect]
     Indication: HYPERTENSION
     Dosage: ONE + HALF PILL ONCE DAILY PO
     Route: 048
     Dates: start: 20110323, end: 20110505

REACTIONS (1)
  - PAIN IN EXTREMITY [None]
